FAERS Safety Report 9681285 (Version 3)
Quarter: 2013Q4

REPORT INFORMATION
  Report Type: Report from Study
  Country: TW (occurrence: TW)
  Receive Date: 20131111
  Receipt Date: 20131114
  Transmission Date: 20140711
  Serious: Yes (Hospitalization, Disabling, Other)
  Sender: FDA-Public Use
  Company Number: PHHY2013TW109677

PATIENT
  Age: 86 Year
  Sex: Female

DRUGS (1)
  1. ACLASTA/ZOLEDRONATE [Suspect]
     Indication: OSTEOPOROSIS
     Dosage: 5 MG, UNK
     Route: 042
     Dates: start: 20121004

REACTIONS (3)
  - Cerebrovascular accident [Recovered/Resolved with Sequelae]
  - Paralysis [Not Recovered/Not Resolved]
  - Loss of consciousness [Recovered/Resolved with Sequelae]
